FAERS Safety Report 11813976 (Version 3)
Quarter: 2015Q4

REPORT INFORMATION
  Report Type: Spontaneous
  Country: US (occurrence: US)
  Receive Date: 20151209
  Receipt Date: 20151226
  Transmission Date: 20160305
  Serious: Yes (Death, Hospitalization, Other)
  Sender: FDA-Public Use
  Company Number: US-STRIDES ARCOLAB LIMITED-2015SP002063

PATIENT

DRUGS (8)
  1. MYCOPHENOLATE MOFETIL. [Suspect]
     Active Substance: MYCOPHENOLATE MOFETIL
     Indication: HEART TRANSPLANT
     Dosage: 500 MG, BID
  2. MYCOPHENOLATE MOFETIL. [Suspect]
     Active Substance: MYCOPHENOLATE MOFETIL
     Dosage: UNK
  3. TACROLIMUS. [Suspect]
     Active Substance: TACROLIMUS
     Indication: HEART TRANSPLANT
     Dosage: 3.5 MG, BID
     Route: 048
  4. PREDNISOLONE. [Suspect]
     Active Substance: PREDNISOLONE
     Indication: HEART TRANSPLANT
     Dosage: 20 MG, QD
  5. SIROLIMUS. [Concomitant]
     Active Substance: SIROLIMUS
     Indication: HEART TRANSPLANT
     Dosage: UNK
  6. PREDNISOLONE. [Suspect]
     Active Substance: PREDNISOLONE
     Dosage: UNK
  7. VALGANCICLOVIR [Suspect]
     Active Substance: VALGANCICLOVIR
     Indication: HEART TRANSPLANT
     Dosage: 450 MG, QD, POST TRANSPLANTATION
  8. TACROLIMUS. [Suspect]
     Active Substance: TACROLIMUS
     Dosage: THERAPY WAS SLOWLY TAPERED DOWN
     Route: 048

REACTIONS (15)
  - Pallor [Unknown]
  - Anuria [Unknown]
  - Human herpesvirus 8 infection [Unknown]
  - Depressed level of consciousness [Unknown]
  - Pleural effusion [Unknown]
  - Thrombocytopenia [Unknown]
  - Renal impairment [Unknown]
  - Castleman^s disease [Fatal]
  - Kaposi^s sarcoma [Fatal]
  - Persistent generalised lymphadenopathy [Unknown]
  - Oedema peripheral [Unknown]
  - Nodule [Unknown]
  - Chills [Unknown]
  - Pyrexia [Recovered/Resolved]
  - Haemoglobin decreased [Unknown]
